FAERS Safety Report 8756754 (Version 1)
Quarter: 2012Q4

REPORT INFORMATION
  Report Type: 
  Country: US (occurrence: US)
  Receive Date: 20120828
  Receipt Date: 20120828
  Transmission Date: 20130627
  Serious: Yes (Hospitalization, Other)
  Sender: FDA-Public Use
  Company Number: US-SANOFI-AVENTIS-A03200703459

PATIENT
  Age: 82 Year
  Sex: Female
  Weight: 68 kg

DRUGS (62)
  1. CLOPIDOGREL BISULFATE [Suspect]
     Indication: ARTERIAL STENT INSERTION
     Dosage: Unit dose: 75 mg
     Route: 048
     Dates: start: 20030115, end: 20060616
  2. CLOPIDOGREL BISULFATE [Suspect]
     Indication: PLATELET AGGREGATION INHIBITION
     Dosage: Unit dose: 75 mg
     Route: 048
     Dates: start: 20030115, end: 20060616
  3. ECOTRIN [Concomitant]
     Dosage: Unit dose: 325 mg
     Route: 048
  4. IMDUR [Concomitant]
     Dosage: Unit dose: 30 mg
     Route: 048
  5. GLYCERYL TRINITRATE [Concomitant]
     Indication: CHEST PAIN
     Dosage: Dose text: 0.4 mg tablet every 5 min. x 3 for chest pain as needed
Unit dose: .4 mg
     Route: 060
  6. NOVOLIN N [Concomitant]
     Dosage: Dose text: HS (sliding scale)
     Route: 058
  7. NOVOLIN R [Concomitant]
     Dosage: Dose text: three times daily before meals (sliding scale)
     Route: 058
  8. LEVAQUIN [Concomitant]
     Dosage: Unit dose: 500 mg
     Route: 048
  9. TENORMIN [Concomitant]
     Dosage: Unit dose: 25 mg
     Route: 048
  10. LOVENOX [Concomitant]
     Route: 058
  11. HEXAVITAMIN [Concomitant]
     Route: 048
  12. FERROUS SULFATE [Concomitant]
     Route: 048
  13. PEPCID [Concomitant]
     Dosage: Unit dose: 20 mg
     Route: 048
  14. MYCOSTATIN [Concomitant]
     Route: 048
  15. XANAX [Concomitant]
     Dosage: Unit dose: .25 mg
     Route: 048
  16. XANAX [Concomitant]
     Dosage: Dose text: 0.25 mg HS prn 
Unit dose: .25 mg
     Route: 048
     Dates: start: 200605
  17. DOCUSATE [Concomitant]
     Dosage: Unit dose: 240 mg
     Route: 048
  18. LASIX [Concomitant]
     Route: 048
  19. K-DUR [Concomitant]
     Dosage: Unit dose: 20 meq
     Route: 048
  20. XALATAN [Concomitant]
     Route: 047
  21. TIMOPTIC [Concomitant]
     Route: 047
  22. TRUSOPT [Concomitant]
     Route: 047
  23. MAGNESIUM [Concomitant]
     Route: 048
  24. CORDARONE [Concomitant]
     Dosage: Unit dose: 200 mg
     Route: 048
  25. PERCOCET [Concomitant]
     Indication: PAIN
     Dosage: Dose text: 1-2 tablets every 4-6 hours pain
     Route: 048
  26. ACETAMINOPHEN [Concomitant]
     Indication: FEVER
     Dosage: Dose text: 650 mg every 4 hours as needed
     Route: 054
  27. ALBUTEROL [Concomitant]
     Dosage: Dose text: Unit dose every 4 hours while awake
     Route: 055
  28. PROPOXYPHENE NAPSYLATE [Concomitant]
     Indication: PAIN
     Dosage: Dose text: Every 4 hours when needed
     Route: 048
  29. TYLENOL [Concomitant]
     Dosage: Dose text: 325 mg (two tablets) every 4 hours as needed 
Unit dose: 325 mg
     Route: 048
  30. MILK OF MAGNESIA [Concomitant]
     Dosage: Dose text: 30-60 ml as needed
     Route: 048
  31. ATIVAN [Concomitant]
     Dosage: Dose text: 1 mg every 12 hours as needed
Unit dose: 1 mg
     Route: 048
  32. TEMAZEPAM [Concomitant]
     Indication: SLEEP DISORDER
     Dosage: Unit dose: 15 mg
     Route: 048
  33. TIGAN [Concomitant]
     Dosage: Dose text: 200 mg every 6-8 hours as needed
     Route: 054
  34. TIGAN [Concomitant]
     Dosage: Dose text: 250 mg oral every 8 hours prn
     Route: 048
  35. COMPAZINE [Concomitant]
     Dosage: Dose text: 5 mg every 4-6 hours as needed
Unit dose: 10 mg
     Route: 030
  36. DULCOLAX [Concomitant]
     Indication: CONSTIPATION
     Route: 054
  37. ADVAIR [Concomitant]
     Dosage: Dose text: 250/50 one inhalation at bedtime
     Route: 055
  38. SODIUM CHLORIDE [Concomitant]
     Indication: FLUSHED
     Route: 042
  39. TENORMIN [Concomitant]
     Dosage: Unit dose: 25 mg
     Route: 048
     Dates: start: 20050801
  40. TENORMIN [Concomitant]
     Dosage: Unit dose: 25 mg
     Route: 048
  41. EZETIMIBE [Concomitant]
     Dosage: Unit dose: 10 mg
     Route: 048
     Dates: start: 20051007
  42. SIMVASTATIN [Concomitant]
     Dosage: Unit dose: 40 mg
     Route: 048
     Dates: start: 20051007
  43. MECLOZINE HYDROCHLORIDE [Concomitant]
     Dosage: Unit dose: 12.5 mg
     Route: 048
     Dates: start: 20060616
  44. AMARYL [Concomitant]
     Dosage: Unit dose: 1 mg
     Route: 048
     Dates: start: 20060427
  45. OMEGA-6 FATTY ACIDS [Concomitant]
     Route: 048
  46. ESTROGENS CONJUGATED [Concomitant]
     Route: 067
     Dates: start: 20051229
  47. FLUVASTATIN SODIUM [Concomitant]
     Route: 048
  48. COUMADIN [Concomitant]
     Route: 048
  49. INSULIN, REGULAR [Concomitant]
     Dosage: Dose text: Sliding scale coverage
     Route: 058
  50. ATIVAN [Concomitant]
     Dosage: Dose text: 1 mg oral every 12 hours prn
     Route: 048
  51. RESTORIL [Concomitant]
     Dosage: Dose text: 15 mg oral at bedtime prn
     Route: 048
  52. LOPERAMIDE [Concomitant]
     Dosage: Dose text: 4 mg oral four times daily prn
     Route: 048
  53. MAALOX PLUS [Concomitant]
     Dosage: Dose text: 30 ml every 6 hours prn
     Route: 048
  54. SENNA [Concomitant]
     Route: 048
  55. VITAMIN C [Concomitant]
     Route: 048
  56. ZINC SULFATE [Concomitant]
     Route: 048
  57. THERAGRAN-M [Concomitant]
     Route: 048
  58. TESSALON [Concomitant]
     Dosage: Dose text: 100-200 mg oral three times daily prn
     Route: 048
  59. ERYTHROMYCIN [Concomitant]
     Dosage: Dose text: 250 mg oral four times daily for one week
     Route: 048
     Dates: start: 200403, end: 200403
  60. OMEPRAZOLE [Concomitant]
     Indication: GASTRIC DISORDER
  61. JANUVIA [Concomitant]
  62. AGGRENOX [Concomitant]

REACTIONS (21)
  - Pleural effusion [Unknown]
  - Post procedural complication [Unknown]
  - Hypoxia [Unknown]
  - Dyspnoea [Unknown]
  - Rales [Unknown]
  - Arteriogram coronary abnormal [Unknown]
  - Transient ischaemic attack [Recovered/Resolved with Sequelae]
  - Dizziness [Unknown]
  - Memory impairment [Unknown]
  - Hypoaesthesia [Unknown]
  - Coronary artery occlusion [Unknown]
  - Drug ineffective [Unknown]
  - Ischaemic cerebral infarction [Recovered/Resolved with Sequelae]
  - Myocardial infarction [Unknown]
  - Leukocytosis [Unknown]
  - Anaemia [Unknown]
  - Blood potassium decreased [Unknown]
  - Heart rate increased [Unknown]
  - Palpitations [Unknown]
  - Abdominal pain [Unknown]
  - Contusion [Unknown]
